FAERS Safety Report 14153450 (Version 1)
Quarter: 2017Q4

REPORT INFORMATION
  Report Type: Spontaneous
  Country: US (occurrence: US)
  Receive Date: 20171102
  Receipt Date: 20171102
  Transmission Date: 20180321
  Serious: No
  Sender: FDA-Public Use
  Company Number: US-SA-2017SA156847

PATIENT
  Sex: Male

DRUGS (3)
  1. PRAVASTATIN. [Concomitant]
     Active Substance: PRAVASTATIN
     Dosage: DOSE: LOW DOSE
     Route: 065
  2. PRALUENT [Suspect]
     Active Substance: ALIROCUMAB
     Route: 058
  3. ALIROCUMAB PREFILLED PEN [Suspect]
     Active Substance: ALIROCUMAB

REACTIONS (2)
  - Pain in extremity [Unknown]
  - Myalgia [Unknown]
